FAERS Safety Report 21268479 (Version 2)
Quarter: 2022Q3

REPORT INFORMATION
  Report Type: Spontaneous
  Country: US (occurrence: US)
  Receive Date: 20220830
  Receipt Date: 20220906
  Transmission Date: 20221027
  Serious: Yes (Death)
  Sender: FDA-Public Use
  Company Number: US-MTPC-MTDA2022-0022365

PATIENT
  Age: 71 Year
  Sex: Male

DRUGS (2)
  1. RADICAVA [Suspect]
     Active Substance: EDARAVONE
     Indication: Amyotrophic lateral sclerosis
     Dosage: 5 MILLIGRAM, QD FOR 10 OUT OF 14 DAYS, THEN 14 DAYS OFF.
     Route: 048
  2. RADICAVA [Suspect]
     Active Substance: EDARAVONE
     Indication: Amyotrophic lateral sclerosis
     Dosage: 5 MILLIGRAM, QD FOR 10 OUT OF 14 DAYS, THEN 14 DAYS OFF.
     Route: 048

REACTIONS (1)
  - Death [Fatal]

NARRATIVE: CASE EVENT DATE: 20220817
